FAERS Safety Report 6558693-9 (Version None)
Quarter: 2010Q1

REPORT INFORMATION
  Report Type: 
  Country: None (occurrence: None)
  Receive Date: 20100129
  Receipt Date: 20100118
  Transmission Date: 20100710
  Serious: Yes (Hospitalization)
  Sender: FDA-Public Use
  Company Number: FR-PFIZER INC-2009315902

PATIENT
  Age: 64 Year
  Sex: Female

DRUGS (15)
  1. ATARAX [Suspect]
     Indication: ANXIETY
     Dosage: 12.5 MG, 2X/DAY
     Route: 048
     Dates: start: 20091109, end: 20091119
  2. OMEPRAZOLE [Suspect]
     Indication: PROPHYLAXIS AGAINST GASTROINTESTINAL ULCER
     Dosage: 40 MG, 1X/DAY
     Route: 048
     Dates: start: 20091003
  3. ESCITALOPRAM [Suspect]
     Indication: DEPRESSION
     Dosage: UNK
     Route: 048
     Dates: start: 20091116, end: 20091119
  4. ESCITALOPRAM [Suspect]
     Dosage: UNK
     Route: 048
     Dates: start: 20091125, end: 20091130
  5. ESCITALOPRAM [Suspect]
     Dosage: UNK
     Route: 048
     Dates: start: 20091116, end: 20091119
  6. TIENAM [Concomitant]
     Indication: LUNG DISORDER
     Dosage: UNK
     Dates: start: 20091003
  7. ZYVOXID [Concomitant]
     Indication: LUNG DISORDER
     Dosage: UNK
     Dates: start: 20091003
  8. CIPROFLOXACIN HCL [Concomitant]
     Indication: LUNG DISORDER
     Dosage: UNK
     Dates: start: 20091003
  9. ZELITREX [Concomitant]
  10. NEXIUM [Concomitant]
  11. OROCAL [Concomitant]
  12. DOMPERIDONE [Concomitant]
  13. CORTANCYL [Concomitant]
     Dosage: 5 MG, UNK
  14. PERIDYS [Concomitant]
  15. FRESUBIN [Concomitant]

REACTIONS (4)
  - FAECALOMA [None]
  - GASTROINTESTINAL DISORDER [None]
  - HYPONATRAEMIA [None]
  - URINARY TRACT INFECTION BACTERIAL [None]
